FAERS Safety Report 6245138-1 (Version None)
Quarter: 2009Q2

REPORT INFORMATION
  Report Type: 
  Country: None (occurrence: None)
  Receive Date: 20090625
  Receipt Date: 20090615
  Transmission Date: 20091009
  Serious: Yes (Hospitalization)
  Sender: FDA-Public Use
  Company Number: US-ELI_LILLY_AND_COMPANY-US200904001543

PATIENT
  Sex: Male
  Weight: 87.528 kg

DRUGS (8)
  1. ZYPREXA [Suspect]
     Dosage: 20 MG, 2/D
     Dates: start: 20000601
  2. ZYPREXA [Suspect]
     Dosage: 5 MG, EACH MORNING
     Dates: start: 20010601
  3. ZYPREXA [Suspect]
     Dosage: 20 MG, EACH EVENING
     Dates: start: 20010601
  4. ZYPREXA [Suspect]
     Dosage: 35 MG, EACH MORNING
     Dates: start: 20030601
  5. ZYPREXA [Suspect]
     Dosage: 20 MG, EACH EVENING
     Dates: start: 20030601
  6. ZYPREXA [Suspect]
     Dosage: 5 MG, EACH MORNING
     Dates: start: 20080601
  7. ZYPREXA [Suspect]
     Dosage: 20 MG, EACH EVENING
     Dates: start: 20080601
  8. RISPERDAL [Concomitant]
     Dosage: UNK, UNK
     Dates: start: 19960101, end: 20000101

REACTIONS (4)
  - DIABETES MELLITUS [None]
  - HYPERGLYCAEMIA [None]
  - OVERDOSE [None]
  - WEIGHT INCREASED [None]
